FAERS Safety Report 9769020 (Version 1)
Quarter: 2013Q3

REPORT INFORMATION
  Report Type: Spontaneous
  Country: FR (occurrence: None)
  Receive Date: 20130828
  Receipt Date: 20130828
  Transmission Date: 20140515
  Serious: Yes (Death, Life-Threatening, Hospitalization, Disabling)
  Sender: FDA-Public Use
  Company Number: 056-21880-13072711

PATIENT
  Age: 65 Year
  Sex: Female
  Weight: 66 kg

DRUGS (5)
  1. REVLIMID (LENALIDOMIDE) (CAPSULES) [Suspect]
     Indication: DIFFUSE LARGE B-CELL LYMPHOMA
     Route: 048
     Dates: start: 20130522
  2. IMOVANE (ZOPICLONE) [Concomitant]
  3. AUGMENTIN (CLAVULIN) [Concomitant]
  4. LASILIX (FUROSEMIDE) [Concomitant]
  5. SOLUPRED (PREDNISOLONE SODIUM SULFBENZOATE) [Concomitant]

REACTIONS (20)
  - Cardiac failure [None]
  - Hyponatraemia [None]
  - Hepatocellular injury [None]
  - Renal failure acute [None]
  - General physical health deterioration [None]
  - Shock [None]
  - Multi-organ failure [None]
  - Coma [None]
  - Metabolic acidosis [None]
  - Leukocytosis [None]
  - Thrombocytopenia [None]
  - Coagulopathy [None]
  - Ischaemic hepatitis [None]
  - Cardiogenic shock [None]
  - Hypoglycaemia [None]
  - Continuous haemodiafiltration [None]
  - Musculoskeletal pain [None]
  - Respiratory distress [None]
  - Pneumothorax [None]
  - Generalised oedema [None]
